FAERS Safety Report 5519801-1 (Version None)
Quarter: 2007Q4

REPORT INFORMATION
  Report Type: 
  Country: None (occurrence: None)
  Receive Date: 20071116
  Receipt Date: 20070823
  Transmission Date: 20080405
  Serious: No
  Sender: FDA-Public Use
  Company Number: A0676067A

PATIENT
  Age: 78 Year
  Sex: Male

DRUGS (1)
  1. COREG CR [Suspect]
     Route: 048
     Dates: start: 20070718

REACTIONS (2)
  - DIZZINESS [None]
  - HEADACHE [None]
